FAERS Safety Report 7636921-6 (Version None)
Quarter: 2011Q3

REPORT INFORMATION
  Report Type: 
  Country: None (occurrence: None)
  Receive Date: 20110726
  Receipt Date: 20110715
  Transmission Date: 20111222
  Serious: Yes (Death)
  Sender: FDA-Public Use
  Company Number: AU-BAXTER-2011BH023647

PATIENT
  Age: 78 Year
  Sex: Male

DRUGS (3)
  1. TRAVASOL 10% W/ ELECTROLYTES [Suspect]
     Indication: MEDICAL DIET
     Route: 065
  2. CLINOLEIC 20% [Suspect]
     Indication: MEDICAL DIET
     Route: 065
  3. DEXTROSE 10% [Suspect]
     Indication: MEDICAL DIET
     Route: 065

REACTIONS (1)
  - DEATH [None]
